FAERS Safety Report 12133989 (Version 1)
Quarter: 2016Q1

REPORT INFORMATION
  Report Type: Spontaneous
  Country: US (occurrence: US)
  Receive Date: 20160301
  Receipt Date: 20160301
  Transmission Date: 20160526
  Serious: No
  Sender: FDA-Public Use
  Company Number: US-INSYS THERAPEUTICS, INC-INS201506-000257

PATIENT
  Sex: Female

DRUGS (2)
  1. SUBSYS [Suspect]
     Active Substance: FENTANYL
     Indication: CANCER PAIN
  2. SUBSYS [Suspect]
     Active Substance: FENTANYL
     Indication: BACK PAIN

REACTIONS (3)
  - Tongue injury [Not Recovered/Not Resolved]
  - Glossodynia [Unknown]
  - Hypersensitivity [Not Recovered/Not Resolved]
